FAERS Safety Report 4920557-1 (Version None)
Quarter: 2006Q1

REPORT INFORMATION
  Report Type: 
  Country: None (occurrence: None)
  Receive Date: 20060113
  Receipt Date: 20051011
  Transmission Date: 20060701
  Serious: No
  Sender: FDA-Public Use
  Company Number: 2005SP003450

PATIENT
  Age: 53 Year
  Sex: Female
  Weight: 56.6996 kg

DRUGS (4)
  1. LUNESTA [Suspect]
     Indication: MULTIPLE SCLEROSIS
     Dosage: 1 MG;HS;ORAL
     Route: 048
     Dates: start: 20051007, end: 20051015
  2. INTERFERON [Concomitant]
  3. ZOLOFT [Concomitant]
  4. ATACAND [Concomitant]

REACTIONS (1)
  - INSOMNIA [None]
